FAERS Safety Report 24209807 (Version 3)
Quarter: 2024Q3

REPORT INFORMATION
  Report Type: Spontaneous
  Country: US (occurrence: US)
  Receive Date: 20240814
  Receipt Date: 20240912
  Transmission Date: 20241016
  Serious: Yes (Other)
  Sender: PFIZER
  Company Number: US-PFIZER INC-202400233834

PATIENT
  Age: 77 Year
  Sex: Female
  Weight: 88.435 kg

DRUGS (1)
  1. IBRANCE [Suspect]
     Active Substance: PALBOCICLIB
     Indication: Neoplasm malignant
     Dosage: 75 MG, 1X/DAY (7 DAYS OFF FOR EXTRACTION OF MOLAR)
     Route: 048
     Dates: start: 20231208, end: 20240723

REACTIONS (4)
  - Tooth extraction [Recovered/Resolved]
  - Product storage error [Unknown]
  - Poor quality product administered [Unknown]
  - Off label use [Unknown]

NARRATIVE: CASE EVENT DATE: 20231208
